FAERS Safety Report 13069853 (Version 2)
Quarter: 2017Q1

REPORT INFORMATION
  Report Type: Report from Study
  Country: BR (occurrence: BR)
  Receive Date: 20161228
  Receipt Date: 20170105
  Transmission Date: 20170428
  Serious: Yes (Hospitalization, Other)
  Sender: FDA-Public Use
  Company Number: BR-ALEXION PHARMACEUTICALS INC.-A201610328

PATIENT
  Age: 1 Year
  Sex: Male

DRUGS (2)
  1. SOLIRIS [Suspect]
     Active Substance: ECULIZUMAB
     Dosage: 300 MG, Q3W
     Route: 042
  2. SOLIRIS [Suspect]
     Active Substance: ECULIZUMAB
     Indication: HAEMOLYTIC URAEMIC SYNDROME
     Dosage: 300 MG, FOR TWO WEEKS
     Route: 042
     Dates: start: 20151027, end: 20151102

REACTIONS (8)
  - Generalised oedema [Recovering/Resolving]
  - Urine output decreased [Unknown]
  - Oliguria [Recovering/Resolving]
  - Renal impairment [Unknown]
  - Swelling [Unknown]
  - Post procedural haemorrhage [Recovering/Resolving]
  - Haemoglobin decreased [Unknown]
  - Pyrexia [Recovering/Resolving]

NARRATIVE: CASE EVENT DATE: 20161213
